FAERS Safety Report 19091448 (Version 1)
Quarter: 2021Q2

REPORT INFORMATION
  Report Type: Spontaneous
  Country: US (occurrence: US)
  Receive Date: 20210405
  Receipt Date: 20210405
  Transmission Date: 20210717
  Serious: No
  Sender: FDA-Public Use
  Company Number: US-DRREDDYS-USA/USA/21/0133308

PATIENT
  Age: 52 Year
  Sex: Female
  Weight: 67.05 kg

DRUGS (1)
  1. HABITROL [Suspect]
     Active Substance: NICOTINE
     Indication: TOBACCO USER
     Dosage: 21 MG DAILY IN THE MORNING
     Route: 062
     Dates: start: 20210318

REACTIONS (2)
  - Product adhesion issue [Unknown]
  - Product use issue [Unknown]
